FAERS Safety Report 21423200 (Version 3)
Quarter: 2023Q1

REPORT INFORMATION
  Report Type: Spontaneous
  Country: US (occurrence: US)
  Receive Date: 20221007
  Receipt Date: 20230113
  Transmission Date: 20230417
  Serious: Yes (Other)
  Sender: FDA-Public Use
  Company Number: US-BAYER-2022A136114

PATIENT
  Age: 28 Year
  Sex: Female
  Weight: 107.03 kg

DRUGS (1)
  1. MIRENA [Suspect]
     Active Substance: LEVONORGESTREL
     Indication: Contraception
     Dosage: 20?G/DAY
     Route: 015
     Dates: start: 20200717, end: 20230110

REACTIONS (6)
  - Genital haemorrhage [None]
  - Device dislocation [Recovered/Resolved]
  - Abdominal pain lower [None]
  - Device physical property issue [None]
  - Complication of device removal [None]
  - Device expulsion [Recovered/Resolved]

NARRATIVE: CASE EVENT DATE: 20220623
